FAERS Safety Report 4288070-5 (Version None)
Quarter: 2004Q1

REPORT INFORMATION
  Report Type: 
  Country: None (occurrence: None)
  Receive Date: 20040209
  Receipt Date: 20031202
  Transmission Date: 20041129
  Serious: No
  Sender: FDA-Public Use
  Company Number: US-GLAXOSMITHKLINE-A0441656A

PATIENT
  Age: 67 Year
  Sex: Female

DRUGS (6)
  1. PAXIL [Suspect]
     Dosage: 25MG PER DAY
     Route: 048
  2. LIPITOR [Concomitant]
  3. PREMARIN [Concomitant]
  4. AMBIEN [Concomitant]
  5. LEVOXYL [Concomitant]
  6. ATIVAN [Concomitant]

REACTIONS (4)
  - HEADACHE [None]
  - HYPERHIDROSIS [None]
  - PARAESTHESIA [None]
  - TINNITUS [None]
